FAERS Safety Report 6818889 (Version 5)
Quarter: 2020Q4

REPORT INFORMATION
  Report Type: Spontaneous
  Country: TR (occurrence: TR)
  Receive Date: 20081121
  Receipt Date: 20201125
  Transmission Date: 20210114
  Serious: Yes (Other)
  Sender: FDA-Public Use
  Company Number: TR-PFIZER INC-2008096219

PATIENT
  Age: 53 Year
  Sex: Female

DRUGS (2)
  1. LATANOPROST. [Suspect]
     Active Substance: LATANOPROST
     Dosage: AT NIGHT
     Route: 047
  2. BETAXOLOL HCL [Concomitant]
     Active Substance: BETAXOLOL HYDROCHLORIDE
     Dosage: 0.5 %, 2X/DAY

REACTIONS (2)
  - Macular detachment [Recovered/Resolved]
  - Cystoid macular oedema [Recovered/Resolved]
